FAERS Safety Report 7336426-6 (Version None)
Quarter: 2011Q1

REPORT INFORMATION
  Report Type: 
  Country: None (occurrence: None)
  Receive Date: 20110307
  Receipt Date: 20110225
  Transmission Date: 20110831
  Serious: Yes (Hospitalization)
  Sender: FDA-Public Use
  Company Number: IT-ASTRAZENECA-2011SE10837

PATIENT
  Sex: Female

DRUGS (3)
  1. EUTIROX [Concomitant]
     Indication: HYPOTHYROIDISM
     Route: 048
  2. ATENOLOL [Suspect]
     Indication: PALPITATIONS
     Route: 048
     Dates: start: 20101014, end: 20101014
  3. SULAMID [Concomitant]

REACTIONS (2)
  - DIZZINESS [None]
  - CHILLS [None]
